FAERS Safety Report 9834968 (Version 1)
Quarter: 2014Q1

REPORT INFORMATION
  Report Type: Spontaneous
  Country: GB (occurrence: GB)
  Receive Date: 20140122
  Receipt Date: 20140122
  Transmission Date: 20141002
  Serious: Yes (Other)
  Sender: FDA-Public Use
  Company Number: GB-ACTAVIS-2014-00259

PATIENT
  Age: 47 Year
  Sex: Male

DRUGS (6)
  1. TRIAMCINOLONE ACETONIDE (AMALLC) [Suspect]
     Indication: ROTATOR CUFF SYNDROME
     Dosage: 80 MG, SINGLE
     Route: 050
  2. LOPINAVIR W/RITONAVIR [Interacting]
     Indication: HIV INFECTION
     Dosage: 400/100 MG BD
     Route: 065
  3. LANTUS [Concomitant]
     Indication: TYPE 2 DIABETES MELLITUS
     Dosage: UNK
     Route: 065
  4. NOVORAPID [Concomitant]
     Indication: TYPE 2 DIABETES MELLITUS
     Dosage: UNK
     Route: 065
  5. BUPIVACAINE [Concomitant]
     Indication: ROTATOR CUFF SYNDROME
     Dosage: 4 ML, SINGLE
     Route: 050
  6. LIDOCAINE [Concomitant]
     Indication: ROTATOR CUFF SYNDROME
     Dosage: 4 ML, SINGLE
     Route: 050

REACTIONS (2)
  - Cushing^s syndrome [Recovered/Resolved]
  - Drug interaction [Recovered/Resolved]
